FAERS Safety Report 22852329 (Version 3)
Quarter: 2023Q4

REPORT INFORMATION
  Report Type: Spontaneous
  Country: US (occurrence: US)
  Receive Date: 20230823
  Receipt Date: 20231107
  Transmission Date: 20240110
  Serious: Yes (Other)
  Sender: FDA-Public Use
  Company Number: US-HORIZON THERAPEUTICS-HZN-2021-005843

PATIENT

DRUGS (4)
  1. TEPEZZA [Suspect]
     Active Substance: TEPROTUMUMAB-TRBW
     Indication: Endocrine ophthalmopathy
     Dosage: FIRST INFUSION
     Route: 042
     Dates: start: 20200706
  2. TEPEZZA [Suspect]
     Active Substance: TEPROTUMUMAB-TRBW
     Dosage: LAST INFUSION
     Route: 042
     Dates: start: 20201214, end: 20201214
  3. TEPEZZA [Suspect]
     Active Substance: TEPROTUMUMAB-TRBW
     Dosage: FIRST INFUSION (SECOND SERIES OF TEPEZZA INFUSIONS)
     Route: 042
     Dates: start: 20230629
  4. TEPEZZA [Suspect]
     Active Substance: TEPROTUMUMAB-TRBW
     Dosage: 5TH AND FINAL INFUSION
     Route: 042
     Dates: start: 2023

REACTIONS (11)
  - Muscle tightness [Unknown]
  - Tinnitus [Unknown]
  - Symptom recurrence [Unknown]
  - Muscle spasms [Unknown]
  - Muscle spasms [Unknown]
  - Fatigue [Recovered/Resolved]
  - Peripheral nerve operation [Unknown]
  - Strabismus [Not Recovered/Not Resolved]
  - Exophthalmos [Recovering/Resolving]
  - Eye pain [Unknown]
  - Off label use [Unknown]

NARRATIVE: CASE EVENT DATE: 20200101
